FAERS Safety Report 9287377 (Version 1)
Quarter: 2013Q2

REPORT INFORMATION
  Report Type: Spontaneous
  Country: US (occurrence: US)
  Receive Date: 20130514
  Receipt Date: 20130514
  Transmission Date: 20140414
  Serious: Yes (Other)
  Sender: FDA-Public Use
  Company Number: US-ROCHE-1223993

PATIENT
  Sex: Female

DRUGS (4)
  1. AVASTIN [Suspect]
     Indication: PRODUCT USED FOR UNKNOWN INDICATION
     Route: 042
  2. CARBOPLATIN [Concomitant]
     Route: 042
  3. ALIMTA [Concomitant]
     Route: 042
  4. CRIZOTINIB [Concomitant]
     Route: 042

REACTIONS (1)
  - Metastasis [Unknown]
